FAERS Safety Report 7306039-0 (Version None)
Quarter: 2011Q1

REPORT INFORMATION
  Report Type: 
  Country: None (occurrence: None)
  Receive Date: 20110222
  Receipt Date: 20110215
  Transmission Date: 20110831
  Serious: Yes (Other)
  Sender: FDA-Public Use
  Company Number: KR-PFIZER INC-2011033781

PATIENT
  Sex: Male

DRUGS (1)
  1. DIFLUCAN [Suspect]
     Dosage: 50 MG, 3X/DAY
     Route: 048
     Dates: start: 20110210

REACTIONS (3)
  - SKIN INFECTION [None]
  - HYPERSENSITIVITY [None]
  - TONGUE OEDEMA [None]
